FAERS Safety Report 8052610-0 (Version None)
Quarter: 2012Q1

REPORT INFORMATION
  Report Type: 
  Country: None (occurrence: None)
  Receive Date: 20120118
  Receipt Date: 20120110
  Transmission Date: 20120608
  Serious: Yes (Other)
  Sender: FDA-Public Use
  Company Number: JP-ASTELLAS-2012JP000332

PATIENT
  Age: 1 Day

DRUGS (1)
  1. PROGRAF [Suspect]
     Dosage: UNK
     Route: 064

REACTIONS (1)
  - PREMATURE BABY [None]
